FAERS Safety Report 18410571 (Version 1)
Quarter: 2020Q4

REPORT INFORMATION
  Report Type: Spontaneous
  Country: FR (occurrence: FR)
  Receive Date: 20201021
  Receipt Date: 20201021
  Transmission Date: 20210114
  Serious: Yes (Hospitalization)
  Sender: FDA-Public Use
  Company Number: FR-MYLANLABS-2020M1087961

PATIENT
  Age: 28 Year
  Sex: Male
  Weight: 120 kg

DRUGS (16)
  1. DALACINE                           /00166003/ [Suspect]
     Active Substance: CLINDAMYCIN
     Dosage: 600 MILLIGRAM, QD
     Route: 042
     Dates: start: 20200808, end: 20200812
  2. ORBENINE [Suspect]
     Active Substance: CLOXACILLIN SODIUM
     Dosage: 12 GIGABECQUEREL, QD
     Route: 042
     Dates: start: 20200803, end: 20200808
  3. LEVOTHYROX [Concomitant]
     Active Substance: LEVOTHYROXINE
     Dosage: UNK
  4. CALCIPARINE [Suspect]
     Active Substance: HEPARIN CALCIUM
     Indication: THROMBOSIS PROPHYLAXIS
     Dosage: 10000 INTERNATIONAL UNIT, QD
     Route: 058
     Dates: start: 20200713, end: 20200821
  5. MIDAZOLAM. [Concomitant]
     Active Substance: MIDAZOLAM
     Dosage: UNK
  6. PROPOFOL. [Concomitant]
     Active Substance: PROPOFOL
     Dosage: UNK
  7. BISOPROLOL [Suspect]
     Active Substance: BISOPROLOL
     Indication: HYPERTENSION
     Dosage: UNK
     Route: 048
     Dates: start: 20200726, end: 20200821
  8. TAVANIC [Suspect]
     Active Substance: LEVOFLOXACIN
     Indication: SINUSITIS
     Dosage: 1000 MILLIGRAM, QD
     Route: 042
     Dates: start: 20200720, end: 20200806
  9. DALACINE                           /00166003/ [Suspect]
     Active Substance: CLINDAMYCIN
     Indication: PNEUMONIA
     Dosage: 600 MILLIGRAM, QD
     Route: 042
     Dates: start: 20200715, end: 20200803
  10. TAZOCILLINE [Suspect]
     Active Substance: PIPERACILLIN SODIUM\TAZOBACTAM SODIUM
     Dosage: 16 GRAM, QD
     Route: 042
     Dates: start: 20200719, end: 20200803
  11. PARACETAMOL [Concomitant]
     Active Substance: ACETAMINOPHEN
     Dosage: UNK
  12. INEXIUM                            /01479303/ [Suspect]
     Active Substance: ESOMEPRAZOLE
     Indication: PROPHYLAXIS AGAINST GASTROINTESTINAL ULCER
     Dosage: 20 MILLIGRAM, QD
     Route: 042
     Dates: start: 20200712, end: 20200819
  13. ORBENINE [Suspect]
     Active Substance: CLOXACILLIN SODIUM
     Indication: PNEUMONIA
     Dosage: 12 GRAM
     Route: 042
     Dates: start: 20200714, end: 20200719
  14. TAZOCILLINE [Suspect]
     Active Substance: PIPERACILLIN SODIUM\TAZOBACTAM SODIUM
     Indication: PNEUMONIA
     Dosage: 16 UNK
     Route: 042
     Dates: start: 20200712, end: 20200713
  15. LOXAPAC                            /00401801/ [Suspect]
     Active Substance: LOXAPINE
     Indication: PSYCHOTIC DISORDER
     Dosage: UNK
     Route: 042
     Dates: start: 20200724, end: 20200819
  16. DEXMEDETOMIDINE. [Concomitant]
     Active Substance: DEXMEDETOMIDINE
     Dosage: UNK

REACTIONS (2)
  - Toxic epidermal necrolysis [Recovered/Resolved]
  - Drug reaction with eosinophilia and systemic symptoms [Recovered/Resolved]

NARRATIVE: CASE EVENT DATE: 20200808
